FAERS Safety Report 15374844 (Version 1)
Quarter: 2018Q3

REPORT INFORMATION
  Report Type: Spontaneous
  Country: US (occurrence: US)
  Receive Date: 20180906
  Receipt Date: 20180906
  Transmission Date: 20181010
  Serious: Yes (Disabling)
  Sender: FDA-Public Use
  Company Number: None

PATIENT
  Age: 53 Year
  Sex: Female
  Weight: 75.6 kg

DRUGS (17)
  1. MLODIPIN [Concomitant]
  2. METHOTREXATE. [Suspect]
     Active Substance: METHOTREXATE
     Indication: RHEUMATOID ARTHRITIS
     Dosage: ?          QUANTITY:4 TABLET(S);OTHER FREQUENCY:WEEKLY;?
     Route: 048
     Dates: start: 20180624, end: 20180812
  3. MONTELUKAST [Concomitant]
     Active Substance: MONTELUKAST SODIUM
  4. ZADITOR [Concomitant]
     Active Substance: KETOTIFEN FUMARATE
  5. OMEPRAZOLE. [Concomitant]
     Active Substance: OMEPRAZOLE
  6. BIOTIN [Concomitant]
     Active Substance: BIOTIN
  7. ZEAZABTGHIN [Concomitant]
  8. VITAMIN B6 [Concomitant]
     Active Substance: PYRIDOXINE HYDROCHLORIDE
  9. MOVE FREE ULTRA [Concomitant]
  10. OCUVITE WITH LUTEIN [Concomitant]
  11. CALCIUM [Concomitant]
     Active Substance: CALCIUM
  12. FOLIC ACID. [Concomitant]
     Active Substance: FOLIC ACID
  13. FLONASE [Concomitant]
     Active Substance: FLUTICASONE PROPIONATE
  14. VITAMIN D3 [Concomitant]
     Active Substance: CHOLECALCIFEROL
  15. COENZYME Q10 [Concomitant]
     Active Substance: UBIDECARENONE
  16. LORATADINE. [Concomitant]
     Active Substance: LORATADINE
  17. VITAMIN B12 [Concomitant]
     Active Substance: CYANOCOBALAMIN

REACTIONS (6)
  - Gastric disorder [None]
  - Dyspnoea [None]
  - Liver injury [None]
  - Swelling [None]
  - Renal disorder [None]
  - Hepatitis A [None]

NARRATIVE: CASE EVENT DATE: 20180624
